FAERS Safety Report 26166075 (Version 1)
Quarter: 2025Q4

REPORT INFORMATION
  Report Type: Spontaneous
  Country: US (occurrence: US)
  Receive Date: 20251216
  Receipt Date: 20251216
  Transmission Date: 20260118
  Serious: Yes (Other)
  Sender: RANBAXY
  Company Number: US-SUN PHARMACEUTICAL INDUSTRIES INC-2025R1-533037

PATIENT
  Age: 39 Year
  Sex: Male

DRUGS (1)
  1. AMPHETAMINE [Suspect]
     Active Substance: AMPHETAMINE
     Indication: Fatigue
     Dosage: 30 MILLIGRAM, DAILY
     Route: 065

REACTIONS (1)
  - Atrial fibrillation [Recovering/Resolving]
